FAERS Safety Report 10663265 (Version 3)
Quarter: 2014Q4

REPORT INFORMATION
  Report Type: Report from Study
  Country: GR (occurrence: GR)
  Receive Date: 20141218
  Receipt Date: 20141229
  Transmission Date: 20150529
  Serious: Yes (Other)
  Sender: FDA-Public Use
  Company Number: PHHY2014GR163921

PATIENT
  Age: 61 Year
  Sex: Female
  Weight: 61 kg

DRUGS (3)
  1. AFINITOR [Suspect]
     Active Substance: EVEROLIMUS
     Route: 048
     Dates: start: 20140609
  2. AFINITOR [Suspect]
     Active Substance: EVEROLIMUS
     Route: 048
  3. AFINITOR [Suspect]
     Active Substance: EVEROLIMUS
     Indication: PANCREATIC NEUROENDOCRINE TUMOUR METASTATIC
     Dosage: 10 MG, QD
     Route: 048
     Dates: start: 20140426, end: 20140606

REACTIONS (2)
  - Stomatitis [Recovered/Resolved]
  - Malabsorption [Recovered/Resolved]

NARRATIVE: CASE EVENT DATE: 20141215
